FAERS Safety Report 8793079 (Version 2)
Quarter: 2013Q1

REPORT INFORMATION
  Report Type: Report from Study
  Country: JP (occurrence: JP)
  Receive Date: 20120918
  Receipt Date: 20130304
  Transmission Date: 20140127
  Serious: Yes (Other)
  Sender: FDA-Public Use
  Company Number: JP-VERTEX PHARMACEUTICAL INC.-2012-021232

PATIENT
  Age: 71 Year
  Sex: Female

DRUGS (8)
  1. VX-950 (TELAPREVIR) [Suspect]
     Indication: CHRONIC HEPATITIS C
     Dosage: 1500 MG, QD
     Route: 048
     Dates: start: 20120618, end: 20120805
  2. VX-950 (TELAPREVIR) [Suspect]
     Dosage: 1000 MG, QD
     Route: 048
     Dates: start: 20120806, end: 20120819
  3. VX-950 (TELAPREVIR) [Suspect]
     Dosage: 500 MG, QD
     Route: 048
     Dates: start: 20120820
  4. RIBAVIRIN [Suspect]
     Indication: CHRONIC HEPATITIS C
     Dosage: 400 MG, QD
     Route: 048
     Dates: start: 20120618, end: 20120716
  5. RIBAVIRIN [Suspect]
     Dosage: 200 MG, QD
     Route: 048
     Dates: start: 20120717
  6. PEGINTERFERON ALFA-2B [Suspect]
     Indication: CHRONIC HEPATITIS C
     Dosage: 1.5 ?G/KG, QW
     Route: 058
     Dates: start: 20120618
  7. LOXONIN [Concomitant]
     Dosage: 60 MG, QD/PRN
     Route: 048
     Dates: start: 20120618
  8. MUCOSTA [Concomitant]
     Dosage: 100 MG, QD/PRN
     Route: 048
     Dates: start: 20120618

REACTIONS (2)
  - Haemoglobin decreased [Recovered/Resolved]
  - Retinopathy [Recovered/Resolved]
